FAERS Safety Report 19771249 (Version 5)
Quarter: 2021Q4

REPORT INFORMATION
  Report Type: Spontaneous
  Country: US (occurrence: US)
  Receive Date: 20210901
  Receipt Date: 20211229
  Transmission Date: 20220304
  Serious: No
  Sender: FDA-Public Use
  Company Number: US-BRISTOL-MYERS SQUIBB COMPANY-BMS-2021-087180

PATIENT
  Age: 64 Year
  Sex: Female

DRUGS (5)
  1. SPRYCEL [Suspect]
     Active Substance: DASATINIB
     Indication: Chronic myeloid leukaemia
     Dosage: 100 MILLIGRAM, QD
     Route: 048
     Dates: start: 20210829, end: 20210916
  2. SPRYCEL [Suspect]
     Active Substance: DASATINIB
     Dosage: 100 MILLIGRAM, QOD
     Route: 048
     Dates: start: 202108
  3. SPRYCEL [Suspect]
     Active Substance: DASATINIB
     Dosage: 100 MILLIGRAM, QOD
     Route: 048
     Dates: start: 20210930, end: 20211014
  4. SPRYCEL [Suspect]
     Active Substance: DASATINIB
     Dosage: 70 MILLIGRAM, QD
     Route: 048
     Dates: start: 20211011
  5. SPRYCEL [Suspect]
     Active Substance: DASATINIB
     Dosage: 70 MILLIGRAM, QD
     Route: 048
     Dates: start: 20211014

REACTIONS (10)
  - Nausea [Not Recovered/Not Resolved]
  - Constipation [Unknown]
  - Dizziness [Unknown]
  - Body temperature increased [Unknown]
  - Off label use [Unknown]
  - Headache [Not Recovered/Not Resolved]
  - Swelling face [Not Recovered/Not Resolved]
  - Mental disorder [Unknown]
  - General physical condition abnormal [Unknown]
  - Tremor [Unknown]

NARRATIVE: CASE EVENT DATE: 20211001
